FAERS Safety Report 17131717 (Version 1)
Quarter: 2019Q4

REPORT INFORMATION
  Report Type: Spontaneous
  Country: US (occurrence: US)
  Receive Date: 20191209
  Receipt Date: 20191209
  Transmission Date: 20200122
  Serious: Yes (Other)
  Sender: FDA-Public Use
  Company Number: US-UCBSA-2016043321

PATIENT
  Age: 91 Year
  Sex: Female

DRUGS (1)
  1. KEPPRA [Suspect]
     Active Substance: LEVETIRACETAM
     Indication: PETIT MAL EPILEPSY
     Dosage: 500 MG, 2X/DAY (BID)

REACTIONS (5)
  - Depression [Unknown]
  - Paranoia [Unknown]
  - Fatigue [Unknown]
  - Hallucination [Unknown]
  - Mental impairment [Unknown]
